FAERS Safety Report 7152930-8 (Version None)
Quarter: 2010Q4

REPORT INFORMATION
  Report Type: 
  Country: None (occurrence: None)
  Receive Date: 20101213
  Receipt Date: 20101129
  Transmission Date: 20110411
  Serious: Yes (Death, Hospitalization, Other)
  Sender: FDA-Public Use
  Company Number: JP-AMGEN-QUU428597

PATIENT

DRUGS (13)
  1. ENBREL [Suspect]
     Indication: RHEUMATOID ARTHRITIS
     Dosage: 25 MG, QWK
     Route: 058
     Dates: start: 20100707, end: 20100721
  2. RHEUMATREX [Suspect]
     Indication: PRODUCT USED FOR UNKNOWN INDICATION
     Dosage: UNKNOWN TO 06-JUN-2010
     Route: 048
     Dates: end: 20100606
  3. PREDONINE [Suspect]
     Indication: RHEUMATOID ARTHRITIS
     Dosage: 7.5 MG, QD
     Route: 042
     Dates: start: 20100702, end: 20100722
  4. VERAPAMIL HCL [Concomitant]
     Indication: ATRIAL TACHYCARDIA
     Dosage: 120 MG, QD
     Route: 042
     Dates: start: 20100603, end: 20100722
  5. BEPRIDIL [Concomitant]
     Indication: ATRIAL TACHYCARDIA
     Dosage: 100 MG, QD
     Route: 042
     Dates: start: 20100605, end: 20100722
  6. DISTIGMINE BROMIDE [Concomitant]
     Dosage: 5 MG, QD
     Route: 042
     Dates: start: 20100622, end: 20100722
  7. METHYCOBAL [Concomitant]
     Indication: NERVOUSNESS
     Dosage: 1000 A?G, QD
     Route: 042
     Dates: start: 20100603, end: 20100722
  8. ALFAROL [Concomitant]
     Dosage: 1 A?G, QD
     Route: 042
     Dates: start: 20100603, end: 20100722
  9. PROMAC [Concomitant]
     Indication: GASTRITIS
     Dosage: 150 MG, QD
     Route: 042
     Dates: start: 20100603, end: 20100722
  10. BISOPROLOL FUMARATE [Concomitant]
     Indication: ATRIAL TACHYCARDIA
     Dosage: 2.5 MG, QD
     Route: 042
     Dates: start: 20100603, end: 20100722
  11. UBRETID [Concomitant]
     Indication: URINARY RETENTION
     Route: 042
     Dates: start: 20100622, end: 20100722
  12. LANTUS [Concomitant]
     Indication: DIABETES MELLITUS
     Dosage: UNKNOWN/DAY
     Route: 058
     Dates: start: 20100605, end: 20100722
  13. BIOFERMIN [Concomitant]
     Indication: GASTROINTESTINAL DISORDER
     Dosage: 1-3 G/DAY
     Route: 048
     Dates: start: 20100603, end: 20100722

REACTIONS (20)
  - ARTERIOSCLEROSIS [None]
  - ATRIAL FIBRILLATION [None]
  - BASILAR ARTERY STENOSIS [None]
  - BASILAR ARTERY THROMBOSIS [None]
  - CARDIO-RESPIRATORY ARREST [None]
  - CEREBRAL INFARCTION [None]
  - DEHYDRATION [None]
  - GAIT DISTURBANCE [None]
  - HEMIPLEGIA [None]
  - HYPOPHAGIA [None]
  - ILEUS [None]
  - KLEBSIELLA SEPSIS [None]
  - MOVEMENT DISORDER [None]
  - MUSCULAR WEAKNESS [None]
  - PROGRESSIVE MULTIFOCAL LEUKOENCEPHALOPATHY [None]
  - PYREXIA [None]
  - SPEECH DISORDER [None]
  - STAPHYLOCOCCUS TEST POSITIVE [None]
  - TACHYCARDIA PAROXYSMAL [None]
  - URINARY TRACT INFECTION [None]
